FAERS Safety Report 8524946-8 (Version None)
Quarter: 2012Q3

REPORT INFORMATION
  Report Type: 
  Country: None (occurrence: None)
  Receive Date: 20120720
  Receipt Date: 20120712
  Transmission Date: 20120928
  Serious: Yes (Hospitalization, Disabling, Other)
  Sender: FDA-Public Use
  Company Number: US-009507513-1102USA02324

PATIENT

DRUGS (4)
  1. FOSAMAX PLUS D [Suspect]
     Indication: OSTEOPENIA
     Dosage: 70 MG, QW
     Route: 048
     Dates: start: 20000101, end: 20100201
  2. FOSAMAX [Suspect]
     Dosage: 70 MG, QW
     Route: 048
  3. FOSAMAX [Suspect]
     Indication: OSTEOPENIA
     Dosage: 10 MG, QD
     Route: 048
     Dates: start: 20000101, end: 20100201
  4. FOSAMAX [Suspect]
     Dosage: 70 MG, QW
     Route: 048
     Dates: end: 20100201

REACTIONS (29)
  - BREAST CALCIFICATIONS [None]
  - OVARIAN CYST [None]
  - RIB FRACTURE [None]
  - DRUG INEFFECTIVE [None]
  - CONTUSION [None]
  - VERTEBRAL FORAMINAL STENOSIS [None]
  - JOINT EFFUSION [None]
  - IMPAIRED HEALING [None]
  - PATELLOFEMORAL PAIN SYNDROME [None]
  - DERMAL CYST [None]
  - BONE DENSITY DECREASED [None]
  - INTERVERTEBRAL DISC DEGENERATION [None]
  - TOOTH DISORDER [None]
  - FALL [None]
  - BURSITIS [None]
  - SKIN HYPERPIGMENTATION [None]
  - PHLEBITIS SUPERFICIAL [None]
  - NAIL DISCOLOURATION [None]
  - EXOSTOSIS [None]
  - AORTIC ANEURYSM [None]
  - OSTEOPOROSIS [None]
  - ANXIETY [None]
  - ANAEMIA [None]
  - LOOSE BODY IN JOINT [None]
  - SYNOVITIS [None]
  - PAIN IN EXTREMITY [None]
  - FEMUR FRACTURE [None]
  - BLOOD CHOLESTEROL INCREASED [None]
  - ONYCHOMYCOSIS [None]
